FAERS Safety Report 26134042 (Version 1)
Quarter: 2025Q4

REPORT INFORMATION
  Report Type: Spontaneous
  Country: EU (occurrence: EU)
  Receive Date: 20251209
  Receipt Date: 20251209
  Transmission Date: 20260117
  Serious: Yes (Other)
  Sender: RANBAXY
  Company Number: EU-AFSSAPS-NC2025001305

PATIENT
  Age: 14 Year
  Sex: Female
  Weight: 63 kg

DRUGS (1)
  1. ACETAMINOPHEN [Suspect]
     Active Substance: ACETAMINOPHEN
     Indication: Toothache
     Dosage: 16 GRAM IN TOTAL
     Route: 048
     Dates: start: 20250610, end: 20250610

REACTIONS (2)
  - Intentional overdose [Recovered/Resolved]
  - Off label use [Recovered/Resolved]

NARRATIVE: CASE EVENT DATE: 20250610
